FAERS Safety Report 13382978 (Version 1)
Quarter: 2017Q1

REPORT INFORMATION
  Report Type: Spontaneous
  Country: DK (occurrence: NO)
  Receive Date: 20170329
  Receipt Date: 20170329
  Transmission Date: 20170429
  Serious: Yes (Hospitalization, Other)
  Sender: FDA-Public Use
  Company Number: DK-ASTRAZENECA-2017SE30375

PATIENT
  Age: 32627 Day
  Sex: Male
  Weight: 87 kg

DRUGS (18)
  1. SOMAC [Concomitant]
     Active Substance: PANTOPRAZOLE SODIUM
     Dates: start: 20141203
  2. DALTEPARIN SODIUM [Concomitant]
     Active Substance: DALTEPARIN SODIUM
     Dates: start: 20141203
  3. SERETIDE [Concomitant]
     Active Substance: FLUTICASONE PROPIONATE\SALMETEROL XINAFOATE
     Dosage: INHALATION POWDER
     Route: 055
     Dates: start: 20140818
  4. TRIATEC [Concomitant]
     Active Substance: RAMIPRIL
     Dates: start: 2015
  5. ZOLADEX [Suspect]
     Active Substance: GOSERELIN ACETATE
     Indication: PROSTATE CANCER
     Route: 058
     Dates: start: 20120228
  6. BURINEX [Concomitant]
     Active Substance: BUMETANIDE
  7. LAXOBERAL [Concomitant]
     Active Substance: SODIUM PICOSULFATE
     Dates: start: 20060105
  8. LACTULOSE. [Concomitant]
     Active Substance: LACTULOSE
     Dates: start: 20160105
  9. OMNIC [Concomitant]
     Active Substance: TAMSULOSIN HYDROCHLORIDE
  10. PLAVIX [Concomitant]
     Active Substance: CLOPIDOGREL BISULFATE
     Dates: start: 20141203
  11. IMOVANE [Concomitant]
     Active Substance: ZOPICLONE
     Dates: start: 20141209
  12. COLECALCIFEROL [Concomitant]
     Active Substance: CHOLECALCIFEROL
     Dates: start: 2014
  13. CALOGEN [Concomitant]
     Dates: start: 20141203
  14. ENTOCORT [Concomitant]
     Active Substance: BUDESONIDE
     Dates: start: 20150903
  15. SIMVASTATIN. [Concomitant]
     Active Substance: SIMVASTATIN
  16. ADALAT [Concomitant]
     Active Substance: NIFEDIPINE
     Dates: start: 20141202
  17. HIPREX [Concomitant]
     Active Substance: METHENAMINE HIPPURATE
     Dates: start: 2015
  18. REMERON [Concomitant]
     Active Substance: MIRTAZAPINE
     Dates: start: 20151231

REACTIONS (2)
  - Atrial fibrillation [Not Recovered/Not Resolved]
  - Pulmonary embolism [Recovered/Resolved]

NARRATIVE: CASE EVENT DATE: 20160916
